FAERS Safety Report 11831925 (Version 1)
Quarter: 2015Q4

REPORT INFORMATION
  Report Type: Spontaneous
  Country: US (occurrence: None)
  Receive Date: 20151211
  Receipt Date: 20151211
  Transmission Date: 20160305
  Serious: Yes (Life-Threatening, Hospitalization, Other)
  Sender: FDA-Public Use
  Company Number: None

PATIENT
  Age: 45 Year
  Sex: Female
  Weight: 60.78 kg

DRUGS (1)
  1. BACLOFEN 10MG [Suspect]
     Active Substance: BACLOFEN
     Indication: MUSCLE SPASMS
     Dosage: 1 PILL
     Route: 048
     Dates: start: 20151124, end: 20151124

REACTIONS (9)
  - Aspiration [None]
  - Alcohol use [None]
  - Overdose [None]
  - Seizure [None]
  - Loss of consciousness [None]
  - Heart rate increased [None]
  - Abnormal sleep-related event [None]
  - Memory impairment [None]
  - Somnambulism [None]

NARRATIVE: CASE EVENT DATE: 20151125
